FAERS Safety Report 9391400 (Version 1)
Quarter: 2013Q3

REPORT INFORMATION
  Report Type: Spontaneous
  Country: JP (occurrence: JP)
  Receive Date: 20130709
  Receipt Date: 20130709
  Transmission Date: 20140515
  Serious: Yes (Death)
  Sender: FDA-Public Use
  Company Number: JP-ASTELLAS-2013JP007311

PATIENT
  Age: 69 Year
  Sex: Male

DRUGS (15)
  1. FUNGUARD [Suspect]
     Indication: CANDIDA INFECTION
     Dosage: UNK
     Route: 065
     Dates: start: 2009
  2. TICLOPIDINE [Concomitant]
     Dosage: UNK
     Route: 048
  3. AMLODIPINE [Concomitant]
     Dosage: UNK
     Route: 048
  4. TRICHLORMETHIAZIDE [Concomitant]
     Dosage: UNK
     Route: 048
  5. TAMSULOSIN [Concomitant]
     Dosage: UNK
     Route: 048
  6. FERROUS FUMARATE [Concomitant]
     Dosage: UNK
     Route: 048
  7. LEVOFLOXACIN [Concomitant]
     Indication: PYREXIA
     Dosage: UNK
     Route: 065
     Dates: start: 200908
  8. OXYGEN [Concomitant]
     Dosage: UNK
     Route: 055
     Dates: start: 2009
  9. PIPERACILLIN/TAZOBACTAM [Concomitant]
     Dosage: UNK
     Route: 065
     Dates: start: 2009
  10. METHYLPREDNISOLONE [Concomitant]
     Indication: STEROID THERAPY
     Dosage: 1000 MG, UNKNOWN/D
     Route: 065
     Dates: start: 2009, end: 2009
  11. PREDNISOLONE [Concomitant]
     Dosage: 60 MG, UNKNOWN/D
     Route: 065
     Dates: start: 2009, end: 2009
  12. PREDNISOLONE [Concomitant]
     Dosage: 40 MG, UNKNOWN/D
     Route: 065
     Dates: start: 2009, end: 2009
  13. PREDNISOLONE [Concomitant]
     Dosage: 20 MG, UNKNOWN/D
     Route: 065
     Dates: start: 2009, end: 2009
  14. PREDNISOLONE [Concomitant]
     Dosage: 10 MG, UNKNOWN/D
     Route: 065
     Dates: start: 2009, end: 2009
  15. FUROSEMIDE [Concomitant]
     Indication: LEFT VENTRICULAR FAILURE
     Dosage: UNK
     Route: 065
     Dates: start: 2009

REACTIONS (2)
  - Drug ineffective [Unknown]
  - Systemic candida [Fatal]
